FAERS Safety Report 7338506-8 (Version None)
Quarter: 2011Q1

REPORT INFORMATION
  Report Type: 
  Country: None (occurrence: None)
  Receive Date: 20110308
  Receipt Date: 20110302
  Transmission Date: 20110831
  Serious: Yes (Other)
  Sender: FDA-Public Use
  Company Number: CHPA2011US03620

PATIENT
  Age: 51 Year
  Sex: Female

DRUGS (1)
  1. PRIVATE LABEL [Suspect]
     Indication: SMOKING CESSATION THERAPY
     Dosage: 21 MG, QD
     Route: 062
     Dates: start: 20110301, end: 20110302

REACTIONS (6)
  - APPLICATION SITE BLEEDING [None]
  - IRRITABILITY [None]
  - SKIN EXFOLIATION [None]
  - FATIGUE [None]
  - PAIN IN EXTREMITY [None]
  - APPLICATION SITE BURN [None]
